FAERS Safety Report 18244445 (Version 3)
Quarter: 2020Q3

REPORT INFORMATION
  Report Type: Spontaneous
  Country: US (occurrence: US)
  Receive Date: 20200908
  Receipt Date: 20200922
  Transmission Date: 20201103
  Serious: Yes (Other)
  Sender: FDA-Public Use
  Company Number: US-009507513-2009USA002172

PATIENT
  Sex: Female

DRUGS (1)
  1. NEXPLANON [Suspect]
     Active Substance: ETONOGESTREL
     Dosage: 1 IMPLANT (68 MG) FOR 3 YEARS INSERTED IN THE LEFT ARM
     Route: 059
     Dates: start: 20200826, end: 202009

REACTIONS (5)
  - Complication of device removal [Recovered/Resolved]
  - Device dislocation [Recovered/Resolved]
  - No adverse event [Unknown]
  - Complication associated with device [Recovered/Resolved]
  - Device kink [Recovered/Resolved]

NARRATIVE: CASE EVENT DATE: 2020
